FAERS Safety Report 10151672 (Version 1)
Quarter: 2014Q2

REPORT INFORMATION
  Report Type: Spontaneous
  Country: NL (occurrence: NL)
  Receive Date: 20140505
  Receipt Date: 20140505
  Transmission Date: 20141212
  Serious: Yes (Hospitalization)
  Sender: FDA-Public Use
  Company Number: NL-AMGEN-NLDSP2012085678

PATIENT
  Age: 86 Year
  Sex: Female

DRUGS (1)
  1. ARANESP [Suspect]
     Indication: MYELODYSPLASTIC SYNDROME
     Dosage: 60 MUG, Q4WK
     Route: 058
     Dates: start: 20120119, end: 20130314

REACTIONS (1)
  - Hospitalisation [Unknown]
